FAERS Safety Report 16291739 (Version 1)
Quarter: 2019Q2

REPORT INFORMATION
  Report Type: Spontaneous
  Country: US (occurrence: US)
  Receive Date: 20190509
  Receipt Date: 20190509
  Transmission Date: 20190711
  Serious: Yes (Death, Hospitalization, Other)
  Sender: FDA-Public Use
  Company Number: US-CATALYST PHARMACEUTICALS, INC-2019CAT00129

PATIENT
  Age: 83 Year
  Sex: Male
  Weight: 47.62 kg

DRUGS (2)
  1. IRON PILLS [Suspect]
     Active Substance: IRON
  2. FIRDAPSE [Suspect]
     Active Substance: AMIFAMPRIDINE
     Indication: MYASTHENIC SYNDROME
     Dosage: 2 TABLETS, 3X/DAY
     Route: 048
     Dates: start: 201811, end: 201904

REACTIONS (12)
  - Weight decreased [Not Recovered/Not Resolved]
  - Fall [Unknown]
  - Aspiration [Unknown]
  - Malaise [Unknown]
  - Respiratory arrest [Unknown]
  - Underdose [Not Recovered/Not Resolved]
  - Skin discolouration [Unknown]
  - Pneumonia aspiration [Fatal]
  - Muscle rigidity [Unknown]
  - Respiration abnormal [Unknown]
  - Asthenia [Not Recovered/Not Resolved]
  - Contusion [Unknown]

NARRATIVE: CASE EVENT DATE: 201811
